FAERS Safety Report 17003992 (Version 1)
Quarter: 2019Q4

REPORT INFORMATION
  Report Type: Spontaneous
  Country: CN (occurrence: CN)
  Receive Date: 20191107
  Receipt Date: 20191107
  Transmission Date: 20200122
  Serious: Yes (Hospitalization)
  Sender: FDA-Public Use
  Company Number: CN-BAYER-2019-199374

PATIENT
  Age: 54 Year
  Sex: Female
  Weight: 83 kg

DRUGS (2)
  1. GLUCOBAY [Suspect]
     Active Substance: ACARBOSE
     Indication: TYPE 2 DIABETES MELLITUS
     Dosage: 100 MG, TID
     Route: 048
     Dates: start: 20181011, end: 20191011
  2. METFORMIN HYDROCHLORIDE. [Interacting]
     Active Substance: METFORMIN HYDROCHLORIDE
     Indication: TYPE 2 DIABETES MELLITUS
     Dosage: 0.25 G, TID
     Route: 048
     Dates: start: 20181011, end: 20191011

REACTIONS (2)
  - Drug interaction [None]
  - Hypoglycaemic coma [Recovering/Resolving]

NARRATIVE: CASE EVENT DATE: 20181011
